FAERS Safety Report 8903190 (Version 5)
Quarter: 2015Q2

REPORT INFORMATION
  Report Type: Report from Study
  Country: US (occurrence: US)
  Receive Date: 20121112
  Receipt Date: 20150610
  Transmission Date: 20150821
  Serious: Yes (Death, Hospitalization, Other)
  Sender: FDA-Public Use
  Company Number: US-BIOGENIDEC-2012BI050054

PATIENT
  Age: 40 Year
  Sex: Female

DRUGS (1)
  1. TYSABRI [Suspect]
     Active Substance: NATALIZUMAB
     Indication: MULTIPLE SCLEROSIS
     Route: 042
     Dates: start: 20080514, end: 20121004

REACTIONS (4)
  - Sepsis [Fatal]
  - Respiratory arrest [Fatal]
  - Multiple sclerosis [Fatal]
  - Pneumonia [Fatal]

NARRATIVE: CASE EVENT DATE: 2012
